FAERS Safety Report 10775836 (Version 1)
Quarter: 2015Q1

REPORT INFORMATION
  Report Type: Spontaneous
  Country: DE (occurrence: DE)
  Receive Date: 20150209
  Receipt Date: 20150209
  Transmission Date: 20150721
  Serious: Yes (Hospitalization)
  Sender: FDA-Public Use
  Company Number: DE-INCYTE CORPORATION-2015IN000431

PATIENT
  Sex: Female

DRUGS (3)
  1. JAKAFI [Suspect]
     Active Substance: RUXOLITINIB
     Dosage: UNK
     Route: 065
     Dates: start: 201412
  2. HYDREA [Concomitant]
     Active Substance: HYDROXYUREA
     Indication: WHITE BLOOD CELL COUNT INCREASED
     Route: 065
  3. JAKAFI [Suspect]
     Active Substance: RUXOLITINIB
     Indication: MYELOFIBROSIS
     Dosage: 20 MG, QD
     Route: 065

REACTIONS (3)
  - Pyrexia [Recovered/Resolved]
  - Night sweats [Unknown]
  - Infection [Unknown]
